FAERS Safety Report 8964407 (Version 1)
Quarter: 2012Q4

REPORT INFORMATION
  Report Type: 
  Country: US (occurrence: US)
  Receive Date: 20121214
  Receipt Date: 20121214
  Transmission Date: 20130627
  Serious: No
  Sender: FDA-Public Use
  Company Number: US-GLAXOSMITHKLINE-A0982698A

PATIENT
  Age: 55 Year
  Sex: Male

DRUGS (3)
  1. AVODART [Suspect]
     Indication: BENIGN PROSTATIC HYPERPLASIA
     Dosage: .5MG Per day
     Route: 048
     Dates: start: 201204, end: 201206
  2. JALYN [Suspect]
     Indication: BENIGN PROSTATIC HYPERPLASIA
     Dosage: 1CAP Per day
     Route: 048
     Dates: start: 20120606, end: 20120627
  3. CARDIZEM [Concomitant]

REACTIONS (5)
  - Incontinence [Not Recovered/Not Resolved]
  - Pollakiuria [Unknown]
  - Chromaturia [Unknown]
  - Dysuria [Unknown]
  - Urinary tract infection [Unknown]
